FAERS Safety Report 6763708-9 (Version None)
Quarter: 2010Q2

REPORT INFORMATION
  Report Type: 
  Country: None (occurrence: None)
  Receive Date: 20100610
  Receipt Date: 20100603
  Transmission Date: 20101027
  Serious: Yes (Death, Life-Threatening, Hospitalization)
  Sender: FDA-Public Use
  Company Number: GB-BAYER-201027784GPV

PATIENT
  Sex: Female

DRUGS (2)
  1. CIPROXIN [Suspect]
     Indication: SEPSIS
  2. MOUTHWASH (NOS) [Concomitant]
     Indication: MOUTH ULCERATION
     Dates: start: 20100101

REACTIONS (7)
  - DEATH [None]
  - JAUNDICE [None]
  - LIVER INJURY [None]
  - MOUTH ULCERATION [None]
  - PRURITUS [None]
  - RASH [None]
  - TOXIC EPIDERMAL NECROLYSIS [None]
